FAERS Safety Report 10441564 (Version 1)
Quarter: 2014Q3

REPORT INFORMATION
  Report Type: Report from Study
  Country: BR (occurrence: BR)
  Receive Date: 20140908
  Receipt Date: 20140908
  Transmission Date: 20150326
  Serious: Yes (Other)
  Sender: FDA-Public Use
  Company Number: PHHY2014BR115299

PATIENT
  Sex: Male

DRUGS (2)
  1. BUFFERIN [Suspect]
     Active Substance: ASPIRIN
     Dosage: UNK UKN, UNK
  2. EXELON PATCH [Suspect]
     Active Substance: RIVASTIGMINE
     Dosage: UNK UKN, UNK
     Route: 062

REACTIONS (6)
  - Depression [Unknown]
  - Blindness unilateral [Unknown]
  - Parkinson^s disease [Unknown]
  - Retinal detachment [Unknown]
  - Visual acuity reduced [Unknown]
  - Sluggishness [Unknown]
